FAERS Safety Report 7915558-5 (Version None)
Quarter: 2011Q4

REPORT INFORMATION
  Report Type: 
  Country: None (occurrence: None)
  Receive Date: 20111115
  Receipt Date: 20110829
  Transmission Date: 20120403
  Serious: Yes (Death)
  Sender: FDA-Public Use
  Company Number: US-BRISTOL-MYERS SQUIBB COMPANY-15974975

PATIENT
  Age: 41 Year
  Sex: Male

DRUGS (1)
  1. YERVOY [Suspect]
     Dosage: 300 MG Q21DAYS *4 IST DOSE ON 10JUN11.
     Dates: start: 20110610

REACTIONS (1)
  - NEOPLASM MALIGNANT [None]
